FAERS Safety Report 4295980-1 (Version None)
Quarter: 2004Q1

REPORT INFORMATION
  Report Type: 
  Country: None (occurrence: None)
  Receive Date: 20040212
  Receipt Date: 20040130
  Transmission Date: 20041129
  Serious: Yes (Hospitalization)
  Sender: FDA-Public Use
  Company Number: 2004AP00230

PATIENT
  Age: 62 Year
  Sex: Female
  Weight: 42 kg

DRUGS (13)
  1. IRESSA [Suspect]
     Indication: LUNG NEOPLASM MALIGNANT
     Dosage: 250 MG DAILY PO
     Route: 048
     Dates: start: 20021101
  2. CISPLATIN [Concomitant]
  3. UFT [Concomitant]
  4. GEMZAR [Concomitant]
  5. NAVELBINE [Concomitant]
  6. RADIOTHERAPY [Concomitant]
  7. MITOMYCIN-C BULK POWDER [Concomitant]
  8. VINDESINE [Concomitant]
  9. PARIET [Concomitant]
  10. RINDERON [Concomitant]
  11. SELBEX [Concomitant]
  12. AMARYL [Concomitant]
  13. LIPOVAS ^BANYU^ [Concomitant]

REACTIONS (13)
  - BLOOD ALKALINE PHOSPHATASE INCREASED [None]
  - BLOOD BICARBONATE INCREASED [None]
  - BLOOD CHOLINESTERASE ABNORMAL [None]
  - BLOOD CREATININE DECREASED [None]
  - BRAIN OEDEMA [None]
  - CEREBRAL VENTRICLE DILATATION [None]
  - HAEMATOCRIT DECREASED [None]
  - HAEMOGLOBIN DECREASED [None]
  - LABORATORY TEST ABNORMAL [None]
  - LEUKOENCEPHALOPATHY [None]
  - LYMPHOCYTE PERCENTAGE DECREASED [None]
  - PO2 INCREASED [None]
  - RED BLOOD CELL COUNT ABNORMAL [None]
